FAERS Safety Report 23707234 (Version 3)
Quarter: 2024Q3

REPORT INFORMATION
  Report Type: Spontaneous
  Country: US (occurrence: US)
  Receive Date: 20240404
  Receipt Date: 20240927
  Transmission Date: 20241017
  Serious: Yes (Death, Life-Threatening, Hospitalization, Other)
  Sender: BRISTOL MYERS SQUIBB
  Company Number: US-BRISTOL-MYERS SQUIBB COMPANY-2024-050671

PATIENT
  Age: 68 Year
  Sex: Female

DRUGS (3)
  1. NIVOLUMAB [Suspect]
     Active Substance: NIVOLUMAB
     Indication: Transitional cell carcinoma
  2. IPILIMUMAB [Suspect]
     Active Substance: IPILIMUMAB
     Indication: Transitional cell carcinoma
  3. SACITUZUMAB GOVITECAN [Concomitant]
     Active Substance: SACITUZUMAB GOVITECAN
     Indication: Product used for unknown indication

REACTIONS (3)
  - Atrioventricular block complete [Fatal]
  - Immune-mediated myocarditis [Not Recovered/Not Resolved]
  - Cardiac failure acute [Unknown]
